FAERS Safety Report 5825014-6 (Version None)
Quarter: 2008Q3

REPORT INFORMATION
  Report Type: 
  Country: None (occurrence: None)
  Receive Date: 20080728
  Receipt Date: 20080616
  Transmission Date: 20090109
  Serious: Yes (Hospitalization)
  Sender: FDA-Public Use
  Company Number: DE-PFIZER INC-2008061335

PATIENT
  Age: 42 Year
  Sex: Female

DRUGS (5)
  1. ATARAX [Suspect]
     Route: 048
     Dates: start: 20080614, end: 20080614
  2. ZELDOX (CAPSULES) [Suspect]
     Route: 048
     Dates: start: 20080614, end: 20080614
  3. MIRTAZAPINE [Suspect]
     Route: 048
     Dates: start: 20080614, end: 20080614
  4. SEROQUEL [Suspect]
     Route: 048
     Dates: start: 20080614, end: 20080614
  5. SEROQUEL [Suspect]
     Route: 048
     Dates: start: 20080614, end: 20080614

REACTIONS (4)
  - HYPOTENSION [None]
  - SOMNOLENCE [None]
  - SUICIDE ATTEMPT [None]
  - TACHYCARDIA [None]
